FAERS Safety Report 6807764-8 (Version None)
Quarter: 2010Q2

REPORT INFORMATION
  Report Type: 
  Country: None (occurrence: None)
  Receive Date: 20100628
  Receipt Date: 20100628
  Transmission Date: 20101027
  Serious: No
  Sender: FDA-Public Use
  Company Number: None

PATIENT
  Sex: Male

DRUGS (1)
  1. ATIVAN [Suspect]
     Dosage: 1 MG QHS PO
     Route: 048

REACTIONS (1)
  - PRODUCT SUBSTITUTION ISSUE [None]
